FAERS Safety Report 15896921 (Version 1)
Quarter: 2019Q1

REPORT INFORMATION
  Report Type: Spontaneous
  Country: IN (occurrence: IN)
  Receive Date: 20190131
  Receipt Date: 20190131
  Transmission Date: 20190417
  Serious: Yes (Other)
  Sender: FDA-Public Use
  Company Number: IN-MYLANLABS-2019M1008365

PATIENT
  Age: 16 Year
  Sex: Female

DRUGS (5)
  1. ESCITALOPRAM [Suspect]
     Active Substance: ESCITALOPRAM OXALATE
     Indication: DISSOCIATIVE DISORDER
     Dosage: INCREASED UP TO A DOSE OF 20 MG; INITIAL DOSE NOT STATED
     Route: 065
  2. SERTRALINE [Suspect]
     Active Substance: SERTRALINE HYDROCHLORIDE
     Indication: DISSOCIATIVE DISORDER
     Route: 065
  3. DEXMEDETOMIDINE. [Suspect]
     Active Substance: DEXMEDETOMIDINE
     Indication: SEDATIVE THERAPY
     Dosage: OVER 10 MIN, FOLLOWED BY 0.5 MICROG/KG/HOUR DOSE
     Route: 050
  4. CLONAZEPAM. [Concomitant]
     Active Substance: CLONAZEPAM
     Indication: DISSOCIATIVE DISORDER
     Route: 065
  5. DEXMEDETOMIDINE. [Suspect]
     Active Substance: DEXMEDETOMIDINE
     Dosage: PER HOUR DOSE
     Route: 050

REACTIONS (2)
  - Drug ineffective [Unknown]
  - Nausea [Unknown]
